FAERS Safety Report 4771862-3 (Version None)
Quarter: 2005Q3

REPORT INFORMATION
  Report Type: 
  Country: None (occurrence: None)
  Receive Date: 20050916
  Receipt Date: 20050907
  Transmission Date: 20060218
  Serious: Yes (Death, Hospitalization)
  Sender: FDA-Public Use
  Company Number: US-JNJFOC-20050902394

PATIENT
  Age: 56 Year
  Sex: Female

DRUGS (6)
  1. ACETAMINOPHEN [Suspect]
     Route: 048
  2. ACETAMINOPHEN [Suspect]
     Route: 048
  3. ASPIRIN [Suspect]
     Route: 048
  4. QUETIAPINE FUMARATE [Concomitant]
  5. OXCARBAZEPINE [Concomitant]
  6. IBUPROFEN [Concomitant]

REACTIONS (4)
  - COMPLETED SUICIDE [None]
  - HEPATIC NECROSIS [None]
  - INTENTIONAL MISUSE [None]
  - PULMONARY OEDEMA [None]
